FAERS Safety Report 17875658 (Version 2)
Quarter: 2020Q3

REPORT INFORMATION
  Report Type: Spontaneous
  Country: FI (occurrence: FI)
  Receive Date: 20200609
  Receipt Date: 20200810
  Transmission Date: 20201103
  Serious: Yes (Disabling, Other)
  Sender: FDA-Public Use
  Company Number: FI-MYLANLABS-2020M1054552

PATIENT
  Age: 41 Year
  Sex: Female

DRUGS (17)
  1. QUETIAPINE. [Suspect]
     Active Substance: QUETIAPINE
     Indication: BIPOLAR DISORDER
     Dosage: 25 MILLIGRAM, QD(25 MG, ONCE OR TWICE DAILY)
     Dates: start: 2008, end: 201503
  2. ZOPICLONE [Suspect]
     Active Substance: ZOPICLONE
     Indication: SLEEP DISORDER
     Dosage: 3.75 MG, 1D
     Dates: start: 2015, end: 2015
  3. LITHIUM CARBONATE. [Suspect]
     Active Substance: LITHIUM CARBONATE
     Dosage: 0.5 DOSAGE FORM, QD
     Dates: start: 201502, end: 201502
  4. ZOPICLONE [Suspect]
     Active Substance: ZOPICLONE
     Dosage: 7.5 MG, 1D
     Dates: end: 2015
  5. CITALOPRAM [Suspect]
     Active Substance: CITALOPRAM HYDROBROMIDE
     Indication: ANTIDEPRESSANT THERAPY
     Dosage: 20 MG, 1D
     Dates: start: 2005, end: 2015
  6. CITALOPRAM [Suspect]
     Active Substance: CITALOPRAM HYDROBROMIDE
     Dosage: 5 MG, 1D
     Dates: start: 2015, end: 2015
  7. CITALOPRAM [Suspect]
     Active Substance: CITALOPRAM HYDROBROMIDE
     Dosage: 50 MG, 1D
  8. LITHIUM CARBONATE. [Suspect]
     Active Substance: LITHIUM CARBONATE
     Dosage: 150 MG, 1D
     Route: 048
     Dates: start: 201502
  9. QUETIAPINE. [Suspect]
     Active Substance: QUETIAPINE
     Dosage: 50 MILLIGRAM, QD(LOW DOSE)
     Dates: start: 2008, end: 201503
  10. ALPRAZOLAM. [Suspect]
     Active Substance: ALPRAZOLAM
     Indication: INSOMNIA
     Dosage: 0.5 MG, 1D(TO BE TAKEN ONLY WHEN NEEDED, TOOK RARELY)
     Dates: end: 2015
  11. LITHIUM CARBONATE. [Suspect]
     Active Substance: LITHIUM CARBONATE
     Dosage: 2.5 DOSAGE FORM, QD
     Dates: end: 201502
  12. ZOPICLONE [Suspect]
     Active Substance: ZOPICLONE
     Dosage: 3.75 MG ONCE IN TWO DAYS
     Dates: start: 2015, end: 2015
  13. CITALOPRAM [Suspect]
     Active Substance: CITALOPRAM HYDROBROMIDE
     Dosage: 10 MG, 1D
     Dates: start: 2015, end: 2015
  14. LITHIUM CARBONATE. [Suspect]
     Active Substance: LITHIUM CARBONATE
     Indication: ANTIDEPRESSANT THERAPY
     Dosage: 300 MG, 3?4 TIMES A DAY(1 DF)
     Route: 048
     Dates: start: 201308
  15. LITHIUM CARBONATE. [Suspect]
     Active Substance: LITHIUM CARBONATE
     Dosage: 300 MG, 1D
     Route: 048
     Dates: start: 201308
  16. LITHIUM CARBONATE. [Suspect]
     Active Substance: LITHIUM CARBONATE
     Dosage: 2 DOSAGE FORM, QD
     Dates: start: 201502, end: 201502
  17. LITHIUM CARBONATE. [Suspect]
     Active Substance: LITHIUM CARBONATE
     Indication: BIPOLAR DISORDER
     Dosage: 300 MG, 1?2 TIMES A DAY(1 DF, 1D)
     Route: 048
     Dates: start: 201502, end: 201502

REACTIONS (9)
  - Ocular discomfort [Recovering/Resolving]
  - Speech disorder [Recovered/Resolved]
  - Fatigue [Recovered/Resolved]
  - Hypothyroidism [Recovered/Resolved]
  - Disturbance in attention [Recovered/Resolved]
  - Memory impairment [Recovered/Resolved]
  - Cognitive disorder [Recovering/Resolving]
  - Sluggishness [Recovered/Resolved]
  - Weight increased [Recovered/Resolved]

NARRATIVE: CASE EVENT DATE: 201308
